FAERS Safety Report 18245126 (Version 2)
Quarter: 2020Q3

REPORT INFORMATION
  Report Type: Spontaneous
  Country: US (occurrence: US)
  Receive Date: 20200909
  Receipt Date: 20200916
  Transmission Date: 20201103
  Serious: No
  Sender: FDA-Public Use
  Company Number: US-009507513-2008USA006233

PATIENT
  Sex: Female
  Weight: 56.69 kg

DRUGS (10)
  1. IMIQUIMOD. [Concomitant]
     Active Substance: IMIQUIMOD
  2. LEVOTHYROXINE SODIUM. [Concomitant]
     Active Substance: LEVOTHYROXINE SODIUM
  3. COZAAR [Concomitant]
     Active Substance: LOSARTAN POTASSIUM
  4. INTRON A [Suspect]
     Active Substance: INTERFERON ALFA-2B
     Indication: CUTANEOUS T-CELL LYMPHOMA
     Dosage: 0.17 ML, 3 TIMES A WEEK; STRENGTH 18MM IUNIT/3ML
     Route: 058
     Dates: start: 2020
  5. OMEGA?3 ACIDS [Concomitant]
     Active Substance: OMEGA-3 FATTY ACIDS
  6. FENOFIBRATE. [Concomitant]
     Active Substance: FENOFIBRATE
  7. VALCHLOR [Concomitant]
     Active Substance: MECHLORETHAMINE
  8. ATORVASTATIN [Concomitant]
     Active Substance: ATORVASTATIN
  9. BEXAROTENE. [Concomitant]
     Active Substance: BEXAROTENE
  10. AMLODIPINE [Concomitant]
     Active Substance: AMLODIPINE BESYLATE

REACTIONS (3)
  - Fatigue [Unknown]
  - Dizziness [Unknown]
  - Pyrexia [Unknown]

NARRATIVE: CASE EVENT DATE: 2020
